FAERS Safety Report 4520163-7 (Version None)
Quarter: 2004Q4

REPORT INFORMATION
  Report Type: 
  Country: None (occurrence: None)
  Receive Date: 20041201
  Receipt Date: 20041201
  Transmission Date: 20050328
  Serious: Yes (Other)
  Sender: FDA-Public Use
  Company Number: None

PATIENT
  Sex: Male
  Weight: 94.3482 kg

DRUGS (1)
  1. SULFAMETHAXOZOLE 800 MG/TMP 16 MG [Suspect]
     Dosage: ONE BID X 10 DAYS

REACTIONS (1)
  - RASH [None]
